FAERS Safety Report 24541320 (Version 1)
Quarter: 2024Q4

REPORT INFORMATION
  Report Type: Spontaneous
  Country: US (occurrence: US)
  Receive Date: 20241023
  Receipt Date: 20241023
  Transmission Date: 20250114
  Serious: Yes (Other)
  Sender: BAUSCH AND LOMB
  Company Number: US-BAUSCH-BL-2024-015342

PATIENT
  Age: 44 Year
  Sex: Male
  Weight: 53.52 kg

DRUGS (1)
  1. RELISTOR [Suspect]
     Active Substance: METHYLNALTREXONE BROMIDE
     Indication: Product used for unknown indication
     Route: 050
     Dates: end: 2024

REACTIONS (7)
  - Withdrawal syndrome [Unknown]
  - Weight decreased [Not Recovered/Not Resolved]
  - Symptom recurrence [Unknown]
  - Constipation [Unknown]
  - Palliative care [Unknown]
  - Abdominal pain upper [Unknown]
  - Therapy interrupted [Unknown]

NARRATIVE: CASE EVENT DATE: 20240101
